FAERS Safety Report 8559255 (Version 3)
Quarter: 2012Q4

REPORT INFORMATION
  Report Type: 
  Country: ES (occurrence: ES)
  Receive Date: 20120511
  Receipt Date: 20121210
  Transmission Date: 20130627
  Serious: Yes (Other)
  Sender: FDA-Public Use
  Company Number: ES-ELI_LILLY_AND_COMPANY-ES201205001032

PATIENT
  Age: 64 None
  Sex: Female

DRUGS (1)
  1. FORSTEO [Suspect]
     Dosage: UNK, unknown
     Route: 065
     Dates: start: 20101130, end: 201210

REACTIONS (6)
  - Hip fracture [Unknown]
  - Fall [Unknown]
  - Gastric cancer [Unknown]
  - Wrist fracture [Unknown]
  - Abdominal pain upper [Unknown]
  - Weight decreased [Unknown]
